FAERS Safety Report 22390053 (Version 1)
Quarter: 2023Q2

REPORT INFORMATION
  Report Type: Spontaneous
  Country: IT (occurrence: IT)
  Receive Date: 20230531
  Receipt Date: 20230531
  Transmission Date: 20230721
  Serious: Yes (Other)
  Sender: FDA-Public Use
  Company Number: IT-AMGEN-ITASP2023080043

PATIENT
  Age: 50 Year
  Sex: Female

DRUGS (7)
  1. TRASTUZUMAB [Suspect]
     Active Substance: TRASTUZUMAB
     Indication: Breast cancer
     Dosage: 6 MILLIGRAM, Q3W (6 MILLIGRAM/KG, Q3WK)
     Route: 042
     Dates: start: 202003
  2. TRASTUZUMAB [Suspect]
     Active Substance: TRASTUZUMAB
     Dosage: UNK
     Route: 065
     Dates: start: 202105
  3. PERTUZUMAB [Suspect]
     Active Substance: PERTUZUMAB
     Indication: Breast cancer
     Dosage: 420 MILLIGRAM, Q3MONTHS (420 MILLIGRAM, Q3MO)
     Route: 042
     Dates: start: 202103
  4. ZOMETA [Concomitant]
     Active Substance: ZOLEDRONIC ACID
     Indication: Breast cancer
     Dosage: UNK
     Route: 065
     Dates: start: 202003
  5. FASLODEX [Concomitant]
     Active Substance: FULVESTRANT
     Indication: Breast cancer
     Dosage: UNK
     Route: 065
  6. PACLITAXEL [Concomitant]
     Active Substance: PACLITAXEL
     Indication: Breast cancer
     Dosage: UNK UNK, QW (UNK UNK, QWK)
     Route: 065
     Dates: end: 20150427
  7. PACLITAXEL [Concomitant]
     Active Substance: PACLITAXEL
     Dosage: 80 MILLIGRAM, QW (80 MILLIGRAM/MQ, QWK)
     Route: 042
     Dates: start: 202003

REACTIONS (4)
  - Metastases to meninges [Recovered/Resolved]
  - Peripheral sensory neuropathy [Unknown]
  - Hypermetabolism [Unknown]
  - Off label use [Unknown]

NARRATIVE: CASE EVENT DATE: 20210301
